FAERS Safety Report 5007016-5 (Version None)
Quarter: 2006Q1

REPORT INFORMATION
  Report Type: 
  Country: None (occurrence: None)
  Receive Date: 20060320
  Receipt Date: 20051006
  Transmission Date: 20060701
  Serious: Yes (Other)
  Sender: FDA-Public Use
  Company Number: 2005-10-0269

PATIENT
  Sex: 0

DRUGS (1)
  1. PEG-INTRON [Suspect]

REACTIONS (1)
  - CARDIOMYOPATHY [None]
